FAERS Safety Report 11421070 (Version 2)
Quarter: 2015Q4

REPORT INFORMATION
  Report Type: Spontaneous
  Country: US (occurrence: US)
  Receive Date: 20150826
  Receipt Date: 20151204
  Transmission Date: 20160304
  Serious: Yes (Hospitalization, Other)
  Sender: FDA-Public Use
  Company Number: US-ELI_LILLY_AND_COMPANY-US201508007241

PATIENT
  Age: 66 Year
  Sex: Male

DRUGS (7)
  1. HUMALOG [Suspect]
     Active Substance: INSULIN LISPRO
     Dosage: UNK, PRN
     Route: 065
  2. HUMALOG [Suspect]
     Active Substance: INSULIN LISPRO
     Indication: TYPE 2 DIABETES MELLITUS
     Dosage: 3 U, WITH MEALS
     Route: 065
  3. MVI                                /01825701/ [Concomitant]
     Active Substance: VITAMINS
  4. CELECO [Concomitant]
  5. VALSARTAN. [Concomitant]
     Active Substance: VALSARTAN
  6. LANTUS [Concomitant]
     Active Substance: INSULIN GLARGINE
     Dosage: 20 U, EACH EVENING
  7. CRESTOR [Concomitant]
     Active Substance: ROSUVASTATIN CALCIUM

REACTIONS (7)
  - Loss of consciousness [Unknown]
  - Arteriosclerosis [Unknown]
  - Renal failure [Unknown]
  - Incorrect product storage [Unknown]
  - Blindness [Not Recovered/Not Resolved]
  - Myocardial infarction [Unknown]
  - Chest pain [Unknown]

NARRATIVE: CASE EVENT DATE: 2015
